FAERS Safety Report 19396258 (Version 1)
Quarter: 2021Q2

REPORT INFORMATION
  Report Type: Report from Study
  Country: US (occurrence: US)
  Receive Date: 20210609
  Receipt Date: 20210609
  Transmission Date: 20210717
  Serious: Yes (Other)
  Sender: FDA-Public Use
  Company Number: US-BRISTOL-MYERS SQUIBB COMPANY-BMS-2021-053510

PATIENT
  Age: 37 Year
  Sex: Female

DRUGS (1)
  1. ABATACEPT [Suspect]
     Active Substance: ABATACEPT
     Indication: UVEITIS
     Dosage: UNK
     Route: 042

REACTIONS (31)
  - Oesophageal stenosis [Unknown]
  - Chest pain [Unknown]
  - Nausea [Unknown]
  - Back pain [Unknown]
  - Alopecia [Unknown]
  - Diarrhoea [Unknown]
  - Abdominal pain [Unknown]
  - Anxiety [Unknown]
  - Malaise [Unknown]
  - Arthralgia [Unknown]
  - Cough [Unknown]
  - Muscle spasms [Unknown]
  - Myalgia [Unknown]
  - Implant site pain [Unknown]
  - Dyspepsia [Unknown]
  - Oropharyngeal pain [Unknown]
  - Pruritus [Unknown]
  - Wheezing [Unknown]
  - Pain [Unknown]
  - Skin burning sensation [Unknown]
  - Dizziness [Unknown]
  - Dyspnoea [Unknown]
  - Asthenia [Unknown]
  - Intentional product use issue [Unknown]
  - Confusional state [Unknown]
  - Odynophagia [Unknown]
  - Fatigue [Unknown]
  - Feeding disorder [Unknown]
  - Insomnia [Unknown]
  - Neck pain [Unknown]
  - Dysphagia [Unknown]
